FAERS Safety Report 9181510 (Version 1)
Quarter: 2013Q1

REPORT INFORMATION
  Report Type: Report from Study
  Country: CA (occurrence: CA)
  Receive Date: 20130322
  Receipt Date: 20130322
  Transmission Date: 20140127
  Serious: Yes (Hospitalization)
  Sender: FDA-Public Use
  Company Number: CA-JNJFOC-20130308592

PATIENT
  Age: 11 None
  Sex: Female
  Weight: 37.4 kg

DRUGS (2)
  1. REMICADE [Suspect]
     Indication: DERMATOMYOSITIS
     Route: 042
  2. REMICADE [Suspect]
     Indication: SCLERODERMA
     Route: 042

REACTIONS (4)
  - Vomiting [Unknown]
  - Oesophagitis [Unknown]
  - Weight decreased [Unknown]
  - Off label use [Unknown]
